FAERS Safety Report 15599772 (Version 1)
Quarter: 2018Q4

REPORT INFORMATION
  Report Type: Spontaneous
  Country: US (occurrence: US)
  Receive Date: 20181108
  Receipt Date: 20181108
  Transmission Date: 20190205
  Serious: Yes (Other)
  Sender: FDA-Public Use
  Company Number: US-BAUSCH-BL-2018-029678

PATIENT
  Age: 90 Year
  Sex: Female

DRUGS (2)
  1. NAFTIFINE. [Suspect]
     Active Substance: NAFTIFINE HYDROCHLORIDE
     Indication: BODY TINEA
     Route: 061
  2. SERTACONAZOLE [Suspect]
     Active Substance: SERTACONAZOLE
     Indication: BODY TINEA
     Route: 061

REACTIONS (2)
  - Therapy non-responder [Unknown]
  - Disease progression [Not Recovered/Not Resolved]
